FAERS Safety Report 7456169-8 (Version None)
Quarter: 2011Q2

REPORT INFORMATION
  Report Type: 
  Country: None (occurrence: None)
  Receive Date: 20110426
  Receipt Date: 20110413
  Transmission Date: 20111010
  Serious: Yes (Other)
  Sender: FDA-Public Use
  Company Number: 031201

PATIENT
  Sex: Female
  Weight: 68.3 kg

DRUGS (1)
  1. CIMZIA [Suspect]
     Indication: RHEUMATOID ARTHRITIS
     Dosage: (400 MG - FREQUENCY : ONCE SUBCUTANEOUS)
     Route: 058
     Dates: start: 20110101, end: 20110101

REACTIONS (5)
  - TINNITUS [None]
  - DIZZINESS [None]
  - PSORIASIS [None]
  - JOINT SWELLING [None]
  - DIPLOPIA [None]
